FAERS Safety Report 5251596-1 (Version None)
Quarter: 2007Q1

REPORT INFORMATION
  Report Type: 
  Country: None (occurrence: None)
  Receive Date: 20070228
  Receipt Date: 20060925
  Transmission Date: 20070707
  Serious: Yes (Other)
  Sender: FDA-Public Use
  Company Number: US-GLAXOSMITHKLINE-A0621302A

PATIENT
  Age: 5 Year
  Sex: Female

DRUGS (2)
  1. LAMICTAL [Suspect]
     Route: 048
     Dates: start: 20050601
  2. NO CONCURRENT MEDICATION [Concomitant]

REACTIONS (2)
  - URINARY INCONTINENCE [None]
  - URINARY TRACT DISORDER [None]
